FAERS Safety Report 6674483-0 (Version None)
Quarter: 2010Q2

REPORT INFORMATION
  Report Type: 
  Country: None (occurrence: None)
  Receive Date: 20100409
  Receipt Date: 20100331
  Transmission Date: 20101027
  Serious: Yes (Other)
  Sender: FDA-Public Use
  Company Number: JP-JNJFOC-20100401846

PATIENT

DRUGS (3)
  1. DUROTEP [Suspect]
     Indication: CANCER PAIN
     Route: 062
  2. DUROTEP [Suspect]
     Route: 062
  3. OXYCODONE HCL [Concomitant]
     Indication: CANCER PAIN

REACTIONS (2)
  - DELIRIUM [None]
  - HALLUCINATION [None]
